FAERS Safety Report 6171141-6 (Version None)
Quarter: 2009Q2

REPORT INFORMATION
  Report Type: 
  Country: None (occurrence: None)
  Receive Date: 20090428
  Receipt Date: 20090428
  Transmission Date: 20091009
  Serious: Yes (Life-Threatening, Hospitalization)
  Sender: FDA-Public Use
  Company Number: None

PATIENT
  Age: 82 Year
  Sex: Female
  Weight: 69.8539 kg

DRUGS (1)
  1. ARANESP [Suspect]
     Indication: ANAEMIA
     Dosage: 200 2 WEEK INTERVALS SQ
     Route: 058
     Dates: start: 20081230, end: 20090128

REACTIONS (11)
  - ANGINA PECTORIS [None]
  - ARTHRALGIA [None]
  - DYSPNOEA [None]
  - FLUID RETENTION [None]
  - HEADACHE [None]
  - INFLUENZA LIKE ILLNESS [None]
  - INTESTINAL OBSTRUCTION [None]
  - LUNG INFECTION [None]
  - MALAISE [None]
  - NONSPECIFIC REACTION [None]
  - PAIN [None]
